FAERS Safety Report 8322404-7 (Version None)
Quarter: 2012Q2

REPORT INFORMATION
  Report Type: 
  Country: None (occurrence: None)
  Receive Date: 20120427
  Receipt Date: 20120411
  Transmission Date: 20120825
  Serious: Yes (Other)
  Sender: FDA-Public Use
  Company Number: ABR_00423_2012

PATIENT
  Sex: Female

DRUGS (1)
  1. BIDIL [Suspect]
     Indication: PRODUCT USED FOR UNKNOWN INDICATION
     Dosage: 2 DF, (TWO TABLETS OF BIDIL AT SEPARATE INTERVALS

REACTIONS (3)
  - HYPOTENSION [None]
  - DIZZINESS [None]
  - LOSS OF CONSCIOUSNESS [None]
